FAERS Safety Report 6496035-8 (Version None)
Quarter: 2009Q4

REPORT INFORMATION
  Report Type: 
  Country: None (occurrence: None)
  Receive Date: 20091214
  Receipt Date: 20090918
  Transmission Date: 20100525
  Serious: No
  Sender: FDA-Public Use
  Company Number: US-BRISTOL-MYERS SQUIBB COMPANY-14784888

PATIENT
  Age: 84 Year
  Sex: Female
  Weight: 73 kg

DRUGS (6)
  1. ABILIFY [Suspect]
     Indication: BIPOLAR DISORDER
  2. PLAVIX [Concomitant]
  3. ASPIRIN [Concomitant]
  4. ENABLEX [Concomitant]
  5. LIPITOR [Concomitant]
  6. METOPROLOL [Concomitant]

REACTIONS (3)
  - DIZZINESS [None]
  - NASOPHARYNGITIS [None]
  - NAUSEA [None]
